FAERS Safety Report 11915636 (Version 1)
Quarter: 2016Q1

REPORT INFORMATION
  Report Type: Spontaneous
  Country: None (occurrence: None)
  Receive Date: 20160113
  Receipt Date: 20160113
  Transmission Date: 20160526
  Serious: No
  Sender: FDA-Public Use
  Company Number: None

PATIENT
  Age: 56 Year
  Sex: Female
  Weight: 102.06 kg

DRUGS (8)
  1. AROMASIN [Concomitant]
     Active Substance: EXEMESTANE
  2. ATENENOL [Concomitant]
  3. IMMETRIX [Concomitant]
  4. VITAMIN B COMPLEX [Concomitant]
     Active Substance: CYANOCOBALAMIN\DEXPANTHENOL\NIACINAMIDE\PYRIDOXINE HYDROCHLORIDE\RIBOFLAVIN 5^-PHOSPHATE SODIUM\THIAMINE HYDROCHLORIDE\VITAMIN B COMPLEX
  5. LEVAQUIN [Suspect]
     Active Substance: LEVOFLOXACIN
     Indication: SINUSITIS
     Dosage: 1
     Route: 048
     Dates: start: 20160105, end: 20160109
  6. LEVAQUIN [Suspect]
     Active Substance: LEVOFLOXACIN
     Indication: POST PROCEDURAL INFECTION
     Dosage: 1
     Route: 048
     Dates: start: 20160105, end: 20160109
  7. NASONEX [Concomitant]
     Active Substance: MOMETASONE FUROATE
  8. VITAMIN D [Concomitant]
     Active Substance: CHOLECALCIFEROL

REACTIONS (4)
  - Arthralgia [None]
  - Joint swelling [None]
  - Tendon pain [None]
  - Joint crepitation [None]

NARRATIVE: CASE EVENT DATE: 20160105
